FAERS Safety Report 8792987 (Version 1)
Quarter: 2012Q4

REPORT INFORMATION
  Report Type: 
  Country: NZ (occurrence: NZ)
  Receive Date: 20120918
  Receipt Date: 20120918
  Transmission Date: 20130627
  Serious: Yes (Other)
  Sender: FDA-Public Use
  Company Number: NZ-009507513-1209NZL000554

PATIENT

DRUGS (11)
  1. FOSAMAX [Suspect]
     Indication: OSTEOPOROSIS
     Dosage: 70 mg, qw
     Route: 048
  2. CALCIUM CITRATE [Concomitant]
     Route: 048
  3. CHOLECALCIFEROL [Concomitant]
     Route: 048
  4. FELODIPINE [Concomitant]
     Dosage: UNK, qd
     Route: 048
  5. CHOLECALCIFEROL [Concomitant]
     Route: 048
  6. DURAPATITE [Concomitant]
     Route: 048
  7. MAGNESIUM OXIDE [Concomitant]
     Route: 048
  8. MANGANESE (UNSPECIFIED) [Concomitant]
     Route: 048
  9. PHYTONADIONE [Concomitant]
     Route: 048
  10. SODIUM BORATE [Concomitant]
     Route: 048
  11. ZINC SULFATE [Concomitant]
     Route: 048

REACTIONS (1)
  - Osteonecrosis [Not Recovered/Not Resolved]
